FAERS Safety Report 7970168-9 (Version None)
Quarter: 2011Q4

REPORT INFORMATION
  Report Type: 
  Country: None (occurrence: None)
  Receive Date: 20111212
  Receipt Date: 20111202
  Transmission Date: 20120403
  Serious: Yes (Other)
  Sender: FDA-Public Use
  Company Number: JP-ASTELLAS-2011JP009016

PATIENT
  Sex: Female

DRUGS (5)
  1. SENNOSIDE [Concomitant]
     Route: 065
  2. VESICARE [Suspect]
     Dosage: UNK
     Route: 048
     Dates: start: 20111010
  3. MAGMITT [Concomitant]
     Route: 065
  4. ZYPREXA [Concomitant]
     Dosage: 10 MG, UNKNOWN/D
     Route: 048
  5. NITRAZEPAM [Concomitant]
     Route: 065

REACTIONS (1)
  - FRONTOTEMPORAL DEMENTIA [None]
